FAERS Safety Report 5939590-6 (Version None)
Quarter: 2008Q4

REPORT INFORMATION
  Report Type: 
  Country: None (occurrence: None)
  Receive Date: 20081030
  Receipt Date: 20081024
  Transmission Date: 20090506
  Serious: Yes (Other)
  Sender: FDA-Public Use
  Company Number: TRP_05840_2008

PATIENT
  Age: 32 Year
  Sex: Female

DRUGS (2)
  1. RIBASPHERE [Suspect]
     Indication: HEPATITIS C
     Dosage: (800 MG QD ORAL)
     Route: 048
     Dates: start: 20070426, end: 20080204
  2. PEG-INTRON [Suspect]
     Indication: HEPATITIS C
     Dosage: (150 UG 1X/WEEK SUBCUTANEOUS)
     Route: 058
     Dates: start: 20070426, end: 20080204

REACTIONS (2)
  - DRUG EXPOSURE DURING PREGNANCY [None]
  - PREGNANCY [None]
